FAERS Safety Report 11135868 (Version 2)
Quarter: 2016Q2

REPORT INFORMATION
  Report Type: Report from Study
  Country: US (occurrence: US)
  Receive Date: 20150526
  Receipt Date: 20160516
  Transmission Date: 20160815
  Serious: No
  Sender: FDA-Public Use
  Company Number: US-MALLINCKRODT-T201501900

PATIENT
  Age: 49 Year
  Sex: Female

DRUGS (1)
  1. REPOSITORY CORTICOTROPIN INJECTION [Suspect]
     Active Substance: CORTICOTROPIN
     Indication: GLOMERULONEPHRITIS MEMBRANOPROLIFERATIVE
     Dosage: 80 UNITS TWICE WEEKLY
     Route: 058
     Dates: start: 20150101, end: 20150907

REACTIONS (6)
  - Oedema [Recovering/Resolving]
  - Injection site pruritus [Recovered/Resolved]
  - Headache [Unknown]
  - Blood potassium decreased [Unknown]
  - Weight increased [Recovering/Resolving]
  - Drug effect decreased [Unknown]

NARRATIVE: CASE EVENT DATE: 20150101
